FAERS Safety Report 7609082-7 (Version None)
Quarter: 2011Q3

REPORT INFORMATION
  Report Type: 
  Country: None (occurrence: None)
  Receive Date: 20110714
  Receipt Date: 20110711
  Transmission Date: 20111222
  Serious: Yes (Other)
  Sender: FDA-Public Use
  Company Number: GB-PFIZER INC-2011156750

PATIENT
  Sex: Female

DRUGS (3)
  1. IBUPROFEN [Concomitant]
     Indication: ARTHRALGIA
     Dosage: 400 MG, 3X/DAY
     Route: 048
     Dates: start: 20050101
  2. NORETHISTERONE [Concomitant]
     Indication: MENSTRUAL DISORDER
     Dosage: 5 MG, 3X/DAY
     Route: 048
     Dates: start: 20050101
  3. VARENICLINE TARTRATE [Suspect]
     Indication: SMOKING CESSATION THERAPY
     Dosage: UNK
     Route: 048

REACTIONS (2)
  - IRIDOCYCLITIS [None]
  - EYE PAIN [None]
